FAERS Safety Report 21484452 (Version 1)
Quarter: 2022Q4

REPORT INFORMATION
  Report Type: Spontaneous
  Country: US (occurrence: US)
  Receive Date: 20221020
  Receipt Date: 20221020
  Transmission Date: 20230113
  Serious: No
  Sender: FDA-Public Use
  Company Number: US-Zogenix International Limited, A wholly owned subsidiary of Zogenix, Inc.-2022ZX001048

PATIENT
  Sex: Male

DRUGS (1)
  1. FINTEPLA [Suspect]
     Active Substance: FENFLURAMINE
     Indication: Product used for unknown indication
     Dosage: 0.8 ML BID FOR 1 WEEK, THEN 0.6 ML BID - 1 WEEK, 0.4 ML BID - 1 WEEK, 0.2 ML BID 1 WEEK, THEN STOP
     Route: 048
     Dates: start: 20210318

REACTIONS (1)
  - Drug ineffective [Unknown]
